FAERS Safety Report 9097219 (Version 1)
Quarter: 2013Q1

REPORT INFORMATION
  Report Type: Spontaneous
  Country: FR (occurrence: FR)
  Receive Date: 20130212
  Receipt Date: 20130212
  Transmission Date: 20140127
  Serious: Yes (Death, Hospitalization)
  Sender: FDA-Public Use
  Company Number: FR-PFIZER INC-2013050067

PATIENT
  Age: 73 Year
  Sex: Male

DRUGS (12)
  1. LYRICA [Suspect]
     Dosage: 75 MG, 2X/DAY
     Route: 048
  2. TAHOR [Suspect]
     Dosage: 20 MG, 1X/DAY
     Route: 048
  3. KARDEGIC [Suspect]
     Dosage: 75 MG, 1X/DAY
     Route: 048
  4. LANTUS [Concomitant]
     Dosage: 18 IU, 1X/DAY
  5. ALLOPURINOL [Concomitant]
     Dosage: 100 MG, 1X/DAY
  6. STILNOX [Concomitant]
     Dosage: 1 DF, 1X/DAY
  7. SEROPLEX [Concomitant]
     Dosage: 1 DF/DAY
  8. HYDROCORTISONE [Concomitant]
     Dosage: 20 MG IN THE MORNING, 10MG AT NOON
  9. LASILIX [Concomitant]
     Dosage: 40 MG, 1X/DAY
  10. ISOPTIN [Concomitant]
     Dosage: 240 MG, 1X/DAY
  11. COZAAR [Concomitant]
     Dosage: 50 MG, 1X/DAY
  12. TEMGESIC [Concomitant]
     Dosage: 3 DF/DAY

REACTIONS (2)
  - Staphylococcal bacteraemia [Fatal]
  - Eosinophilia [Not Recovered/Not Resolved]
